FAERS Safety Report 18190916 (Version 1)
Quarter: 2020Q3

REPORT INFORMATION
  Report Type: Spontaneous
  Country: CA (occurrence: CA)
  Receive Date: 20200825
  Receipt Date: 20200825
  Transmission Date: 20201103
  Serious: Yes (Other)
  Sender: FDA-Public Use
  Company Number: CA-TEVA-2020-CA-1817464

PATIENT
  Age: 24 Year
  Sex: Female

DRUGS (8)
  1. IFOSFAMIDE FOR INJECTION, USP [Concomitant]
     Active Substance: IFOSFAMIDE
  2. ETOPOSIDE. [Suspect]
     Active Substance: ETOPOSIDE
     Indication: OVARIAN GERM CELL TUMOUR
     Route: 065
  3. LUPRON [Concomitant]
     Active Substance: LEUPROLIDE ACETATE
  4. CARBOPLATIN. [Suspect]
     Active Substance: CARBOPLATIN
     Indication: OVARIAN GERM CELL TUMOUR
     Route: 065
  5. CARBOPLATIN. [Suspect]
     Active Substance: CARBOPLATIN
     Indication: GERM CELL CANCER METASTATIC
  6. ETOPOSIDE. [Suspect]
     Active Substance: ETOPOSIDE
     Indication: GERM CELL CANCER METASTATIC
  7. PACLITAXEL INJECTION [Concomitant]
     Active Substance: PACLITAXEL
  8. CISPLATIN INJECTION [Concomitant]
     Active Substance: CISPLATIN

REACTIONS (2)
  - Product use in unapproved indication [Unknown]
  - Hyperplasia of thymic epithelium [Unknown]
